FAERS Safety Report 8314420-6 (Version None)
Quarter: 2012Q2

REPORT INFORMATION
  Report Type: 
  Country: None (occurrence: None)
  Receive Date: 20120426
  Receipt Date: 20120424
  Transmission Date: 20120825
  Serious: Yes (Hospitalization)
  Sender: FDA-Public Use
  Company Number: KR-ROCHE-1058994

PATIENT
  Sex: Male
  Weight: 53 kg

DRUGS (9)
  1. HERCEPTIN [Suspect]
     Route: 042
     Dates: start: 20120319
  2. SODIUM BICARBONATE [Concomitant]
     Dates: start: 20120112
  3. OXALIPLATIN [Suspect]
     Indication: GASTRIC CANCER
     Route: 042
     Dates: start: 20110112
  4. XELODA [Suspect]
     Indication: GASTRIC CANCER
     Route: 048
     Dates: start: 20110112
  5. RAMOSETRON [Concomitant]
     Dates: start: 20120112
  6. DEXAMETHASONE [Concomitant]
     Dates: start: 20120112
  7. XELODA [Suspect]
     Route: 048
     Dates: start: 20120319
  8. HERCEPTIN [Suspect]
     Indication: GASTRIC CANCER
     Route: 042
     Dates: start: 20110112, end: 20120416
  9. OXALIPLATIN [Suspect]
     Route: 042
     Dates: start: 20120319

REACTIONS (1)
  - PNEUMONIA [None]
